FAERS Safety Report 6582319-1 (Version None)
Quarter: 2010Q1

REPORT INFORMATION
  Report Type: 
  Country: None (occurrence: None)
  Receive Date: 20100216
  Receipt Date: 20100208
  Transmission Date: 20100710
  Serious: Yes (Hospitalization)
  Sender: FDA-Public Use
  Company Number: US-KINGPHARMUSA00001-K201000141

PATIENT
  Sex: Male

DRUGS (10)
  1. ALTACE [Suspect]
  2. RANIBIZUMAB [Suspect]
     Dosage: UNK
     Dates: start: 20091201
  3. ROSUVASTATIN [Concomitant]
  4. ESCITALOPRAM OXALATE [Concomitant]
  5. GLIPIZIDE [Concomitant]
  6. MINERALS NOS [Concomitant]
  7. MULTI-VITAMINS [Concomitant]
  8. ASPIRIN [Concomitant]
  9. PIOGLITAZONE HYDROCHLORIDE [Concomitant]
  10. RIVASTIGMINE TARTRATE [Concomitant]

REACTIONS (3)
  - NEPHROLITHIASIS [None]
  - RENAL FAILURE [None]
  - RENAL PAIN [None]
